FAERS Safety Report 24784888 (Version 1)
Quarter: 2024Q4

REPORT INFORMATION
  Report Type: Spontaneous
  Country: GB (occurrence: GB)
  Receive Date: 20241228
  Receipt Date: 20241228
  Transmission Date: 20250115
  Serious: Yes (Other)
  Sender: AUROBINDO
  Company Number: GB-MHRA-MED-202412141230062320-CQSBT

PATIENT
  Age: 71 Year
  Sex: Male
  Weight: 46 kg

DRUGS (1)
  1. ALENDRONIC ACID [Suspect]
     Active Substance: ALENDRONIC ACID
     Indication: Product used for unknown indication
     Dosage: 70 MILLIGRAM, EVERY WEEK (70MG ONCE WEEKLY)
     Route: 065
     Dates: start: 20240609

REACTIONS (1)
  - Tooth loss [Not Recovered/Not Resolved]
